FAERS Safety Report 15582468 (Version 1)
Quarter: 2018Q4

REPORT INFORMATION
  Report Type: Spontaneous
  Country: DE (occurrence: DE)
  Receive Date: 20181103
  Receipt Date: 20181103
  Transmission Date: 20190205
  Serious: Yes (Other)
  Sender: FDA-Public Use
  Company Number: DE-AUROBINDO-AUR-APL-2018-053417

PATIENT
  Sex: Male

DRUGS (2)
  1. LEVETIRACETAM. [Suspect]
     Active Substance: LEVETIRACETAM
     Indication: PRODUCT USED FOR UNKNOWN INDICATION
     Dosage: CURRENTLY, 3 ML ARE BEING ADMINISTERED IN THE MORNING AND 3 ML IN THE EVENING, THE CHILD RECEIVES...
     Route: 065
  2. LEVETIRACETAM NEURAXPHARM [Suspect]
     Active Substance: LEVETIRACETAM
     Indication: EPILEPSY
     Dosage: 2 ML ADMINISTERED IN THE MORNING AND 2.5 MG IN THE EVENING ()
     Route: 065

REACTIONS (2)
  - Drug level decreased [Unknown]
  - Drug ineffective [Unknown]
